FAERS Safety Report 25145029 (Version 1)
Quarter: 2025Q2

REPORT INFORMATION
  Report Type: Spontaneous
  Country: US (occurrence: None)
  Receive Date: 20250401
  Receipt Date: 20250401
  Transmission Date: 20250716
  Serious: No
  Sender: INCYTE
  Company Number: US-INCYTE CORPORATION-2025IN003141

PATIENT
  Age: 64 Year

DRUGS (1)
  1. JAKAFI [Suspect]
     Active Substance: RUXOLITINIB
     Indication: Product used for unknown indication
     Dosage: 20 MILLIGRAM, BID

REACTIONS (3)
  - Pain [Unknown]
  - Asthenia [Unknown]
  - Haemoglobin decreased [Unknown]
